FAERS Safety Report 8822724 (Version 1)
Quarter: 2012Q4

REPORT INFORMATION
  Report Type: 
  Country: DE (occurrence: DE)
  Receive Date: 20121003
  Receipt Date: 20121003
  Transmission Date: 20130627
  Serious: Yes (Hospitalization)
  Sender: FDA-Public Use
  Company Number: DE-ROCHE-1101600

PATIENT
  Sex: Female
  Weight: 70 kg

DRUGS (6)
  1. AVASTIN [Suspect]
     Indication: BREAST CANCER METASTATIC
     Route: 042
     Dates: start: 20120424, end: 20120515
  2. PACLITAXEL [Concomitant]
     Indication: BREAST CANCER METASTATIC
     Route: 042
     Dates: start: 20120120, end: 20120522
  3. ZOLEDRONIC ACID [Concomitant]
     Indication: METASTASES TO BONE
     Route: 042
     Dates: start: 20120210
  4. FENISTIL (GERMANY) [Concomitant]
     Indication: BREAST CANCER
     Route: 042
     Dates: start: 20120120, end: 20120522
  5. RANITIDINE [Concomitant]
     Indication: BREAST CANCER
     Route: 042
     Dates: start: 20120120, end: 20120522
  6. DEXAMETHASON [Concomitant]
     Indication: BREAST CANCER
     Route: 048
     Dates: start: 20120120, end: 20120522

REACTIONS (5)
  - Gastrointestinal perforation [Recovered/Resolved with Sequelae]
  - Peritonitis [Unknown]
  - Abscess intestinal [Unknown]
  - Herpes zoster [Unknown]
  - Pneumonia [Unknown]
